FAERS Safety Report 14684792 (Version 3)
Quarter: 2018Q3

REPORT INFORMATION
  Report Type: Report from Study
  Country: US (occurrence: US)
  Receive Date: 20180327
  Receipt Date: 20180705
  Transmission Date: 20181010
  Serious: Yes (Other)
  Sender: FDA-Public Use
  Company Number: US-CLOVIS ONCOLOGY-CLO-2018-000117

PATIENT
  Sex: Female

DRUGS (4)
  1. RUBRACA [Suspect]
     Active Substance: RUCAPARIB CAMSYLATE
     Dosage: 500 MG, BID
     Route: 048
     Dates: start: 20180112
  2. RUBRACA [Suspect]
     Active Substance: RUCAPARIB CAMSYLATE
     Dosage: 500 MG, BID
     Route: 048
     Dates: start: 2018
  3. RUBRACA [Suspect]
     Active Substance: RUCAPARIB CAMSYLATE
     Indication: OVARIAN CANCER
     Dosage: 600 MG, BID
     Route: 048
     Dates: start: 20180112, end: 2018
  4. RUBRACA [Suspect]
     Active Substance: RUCAPARIB CAMSYLATE
     Dosage: 400 MG, BID
     Route: 048
     Dates: start: 20180112, end: 201805

REACTIONS (15)
  - Anaemia [Unknown]
  - Nausea [Not Recovered/Not Resolved]
  - Diarrhoea [Unknown]
  - Dyspnoea exertional [Unknown]
  - Abdominal pain [Unknown]
  - Toxicity to various agents [Unknown]
  - Constipation [Unknown]
  - Pain [Unknown]
  - Hot flush [Unknown]
  - Blood creatinine increased [Unknown]
  - Dehydration [Not Recovered/Not Resolved]
  - Cough [Unknown]
  - Fatigue [Unknown]
  - Headache [Unknown]
  - Dyspnoea [Unknown]

NARRATIVE: CASE EVENT DATE: 2018
